FAERS Safety Report 16839736 (Version 1)
Quarter: 2019Q3

REPORT INFORMATION
  Report Type: Spontaneous
  Country: US (occurrence: US)
  Receive Date: 20190801
  Receipt Date: 20190801
  Transmission Date: 20191005
  Serious: No
  Sender: FDA-Public Use
  Company Number: None

PATIENT
  Age: 49 Year
  Sex: Female

DRUGS (4)
  1. PREDNISONE. [Concomitant]
     Active Substance: PREDNISONE
  2. LUNESTA [Concomitant]
     Active Substance: ESZOPICLONE
  3. XANAX [Concomitant]
     Active Substance: ALPRAZOLAM
  4. GLATIRAMER 40MG PFS INJ  (12/BOX) [Suspect]
     Active Substance: GLATIRAMER
     Indication: MULTIPLE SCLEROSIS
     Dosage: ?          OTHER FREQUENCY:UNKNOWN;?
     Route: 058
     Dates: start: 20190708

REACTIONS (4)
  - Diarrhoea [None]
  - Pyrexia [None]
  - Influenza [None]
  - Pain [None]

NARRATIVE: CASE EVENT DATE: 20190711
